FAERS Safety Report 4390074-9 (Version None)
Quarter: 2004Q3

REPORT INFORMATION
  Report Type: 
  Country: None (occurrence: None)
  Receive Date: 20040706
  Receipt Date: 20040524
  Transmission Date: 20050211
  Serious: Yes (Death, Hospitalization)
  Sender: FDA-Public Use
  Company Number: GB-AMGEN-US079121

PATIENT
  Sex: Female

DRUGS (2)
  1. ENBREL [Suspect]
     Indication: RHEUMATOID ARTHRITIS
     Route: 058
     Dates: start: 20030301, end: 20040301
  2. PREDNISOLONE [Concomitant]

REACTIONS (3)
  - ABDOMINAL SEPSIS [None]
  - ABSCESS INTESTINAL [None]
  - ENTEROVESICAL FISTULA [None]
